FAERS Safety Report 8832443 (Version 1)
Quarter: 2012Q4

REPORT INFORMATION
  Report Type: Spontaneous
  Country: TR (occurrence: None)
  Receive Date: 20121005
  Receipt Date: 20121005
  Transmission Date: 20130627
  Serious: Yes (Other)
  Sender: FDA-Public Use
  Company Number: B0834873A

PATIENT
  Sex: Female

DRUGS (1)
  1. INNOPRAN XL [Suspect]
     Indication: SUPRAVENTRICULAR TACHYCARDIA

REACTIONS (4)
  - Electrocardiogram PR shortened [None]
  - Electrocardiogram QRS complex prolonged [None]
  - Accelerated idioventricular rhythm [None]
  - Electrocardiogram P wave abnormal [None]
